FAERS Safety Report 23622611 (Version 1)
Quarter: 2024Q1

REPORT INFORMATION
  Report Type: Spontaneous
  Country: US (occurrence: US)
  Receive Date: 20240312
  Receipt Date: 20240312
  Transmission Date: 20240409
  Serious: No
  Sender: FDA-Public Use
  Company Number: US-SANOFI-01972009

PATIENT
  Age: 54 Year
  Sex: Female

DRUGS (8)
  1. CABLIVI [Suspect]
     Active Substance: CAPLACIZUMAB-YHDP
     Indication: Thrombotic thrombocytopenic purpura
     Dosage: 11 MG, 1X
     Route: 040
     Dates: start: 20240306, end: 20240306
  2. CABLIVI [Suspect]
     Active Substance: CAPLACIZUMAB-YHDP
     Indication: Thrombotic thrombocytopenic purpura
     Dosage: 11 MG, 1X
     Route: 040
     Dates: start: 20240306, end: 20240306
  3. CABLIVI [Suspect]
     Active Substance: CAPLACIZUMAB-YHDP
     Indication: Thrombotic thrombocytopenic purpura
     Dosage: 11 MG, 1X
     Route: 040
     Dates: start: 20240306, end: 20240306
  4. CABLIVI [Suspect]
     Active Substance: CAPLACIZUMAB-YHDP
     Indication: Thrombotic thrombocytopenic purpura
     Dosage: 11 MG, 1X
     Route: 040
     Dates: start: 20240306, end: 20240306
  5. CABLIVI [Suspect]
     Active Substance: CAPLACIZUMAB-YHDP
     Dosage: 11 MG, 1X
     Route: 058
     Dates: start: 20240306
  6. CABLIVI [Suspect]
     Active Substance: CAPLACIZUMAB-YHDP
     Dosage: 11 MG, 1X
     Route: 058
     Dates: start: 20240306
  7. CABLIVI [Suspect]
     Active Substance: CAPLACIZUMAB-YHDP
     Dosage: 11 MG, 1X
     Route: 058
     Dates: start: 20240306
  8. CABLIVI [Suspect]
     Active Substance: CAPLACIZUMAB-YHDP
     Dosage: 11 MG, 1X
     Route: 058
     Dates: start: 20240306

REACTIONS (1)
  - Wrong technique in product usage process [Unknown]

NARRATIVE: CASE EVENT DATE: 20240306
